FAERS Safety Report 9903453 (Version 2)
Quarter: 2014Q1

REPORT INFORMATION
  Report Type: Spontaneous
  Country: US (occurrence: US)
  Receive Date: 20140217
  Receipt Date: 20140217
  Transmission Date: 20141002
  Serious: No
  Sender: FDA-Public Use
  Company Number: US-GILEAD-2012-0050433

PATIENT
  Sex: Female

DRUGS (15)
  1. LETAIRIS [Suspect]
     Indication: PULMONARY HYPERTENSION
     Dosage: 5 MG, UNK
     Route: 048
     Dates: start: 20080312
  2. LETAIRIS [Suspect]
     Indication: SCLERODERMA
  3. ADVIL                              /00044201/ [Concomitant]
  4. AMLODIPINE BESYLATE [Concomitant]
  5. HYDROCHLOROTHIAZIDE [Concomitant]
  6. HYDROCORTISONE BUTYRATE [Concomitant]
  7. LEVOTHYROXINE SODIUM [Concomitant]
  8. LOVASTATIN [Concomitant]
  9. METOPROLOL SUCCINATE [Concomitant]
  10. NYSTATIN W/TRIAMCINOLONE           /00945901/ [Concomitant]
  11. PANTOPRAZOLE SODIUM [Concomitant]
  12. PREMARIN [Concomitant]
  13. PREPARATION H                      /00611001/ [Concomitant]
  14. TUMS                               /00108001/ [Concomitant]
  15. VENTOLIN HFA [Concomitant]

REACTIONS (1)
  - Palpitations [Unknown]
